FAERS Safety Report 5202911-6 (Version None)
Quarter: 2006Q4

REPORT INFORMATION
  Report Type: 
  Country: None (occurrence: None)
  Receive Date: 20061016
  Receipt Date: 20060619
  Transmission Date: 20070319
  Serious: No
  Sender: FDA-Public Use
  Company Number: 2006US000993

PATIENT
  Age: 47 Year
  Sex: Male

DRUGS (1)
  1. MYCAMINE [Suspect]
     Indication: OESOPHAGEAL CANDIDIASIS
     Dosage: 150 MG, UID/QD PARENTERAL
     Route: 051

REACTIONS (2)
  - DRUG ADMINISTRATION ERROR [None]
  - HYPERSENSITIVITY [None]
